FAERS Safety Report 19775231 (Version 9)
Quarter: 2022Q2

REPORT INFORMATION
  Report Type: Report from Study
  Country: IL (occurrence: IL)
  Receive Date: 20210902
  Receipt Date: 20220603
  Transmission Date: 20220721
  Serious: Yes (Death, Life-Threatening, Hospitalization, Other)
  Sender: FDA-Public Use
  Company Number: IL-ABBVIE-21K-082-4061389-00

PATIENT
  Age: 81 Year
  Sex: Male
  Weight: 88 kg

DRUGS (18)
  1. VENCLEXTA [Suspect]
     Active Substance: VENETOCLAX
     Indication: Acute myeloid leukaemia
     Dosage: RAMP UP
     Route: 048
     Dates: start: 20210704, end: 20210704
  2. VENCLEXTA [Suspect]
     Active Substance: VENETOCLAX
     Dosage: RAMP UP
     Route: 048
     Dates: start: 20210705, end: 20210705
  3. VENCLEXTA [Suspect]
     Active Substance: VENETOCLAX
     Dosage: DOSE REDUCTION
     Route: 048
     Dates: start: 20210706, end: 20210718
  4. VENCLEXTA [Suspect]
     Active Substance: VENETOCLAX
     Route: 048
     Dates: start: 20210719, end: 20210724
  5. AZACITIDINE [Suspect]
     Active Substance: AZACITIDINE
     Indication: Acute myeloid leukaemia
     Dosage: CYCLE 1
     Route: 058
     Dates: start: 20210704, end: 20210710
  6. AZACITIDINE [Suspect]
     Active Substance: AZACITIDINE
     Route: 065
     Dates: start: 20210801, end: 20210802
  7. CIPRODEX [Concomitant]
     Active Substance: CIPROFLOXACIN HYDROCHLORIDE\DEXAMETHASONE
     Indication: Prophylaxis
     Dates: start: 20210711, end: 20210725
  8. FLUCONAZOLE [Concomitant]
     Active Substance: FLUCONAZOLE
     Indication: Prophylaxis
     Dates: start: 20210719, end: 20210725
  9. PIPERACILLIN SODIUM\TAZOBACTAM SODIUM [Concomitant]
     Active Substance: PIPERACILLIN SODIUM\TAZOBACTAM SODIUM
     Indication: Antibiotic therapy
     Dates: start: 20210707, end: 20210710
  10. VORICONAZOLE [Concomitant]
     Active Substance: VORICONAZOLE
     Indication: Prophylaxis
     Dates: start: 20210725, end: 20210803
  11. MEROPENEM [Concomitant]
     Active Substance: MEROPENEM
     Indication: Escherichia infection
     Dates: start: 20210725, end: 20210803
  12. ALLOPURINOL [Concomitant]
     Active Substance: ALLOPURINOL
     Indication: Tumour lysis syndrome
     Dates: start: 20210704, end: 20210803
  13. ATENOLOL [Concomitant]
     Active Substance: ATENOLOL
     Indication: Arrhythmia
     Dates: start: 202105
  14. LOSEC [Concomitant]
     Active Substance: OMEPRAZOLE
     Indication: Prophylaxis
     Dates: start: 20210712
  15. ZOFRAN [Concomitant]
     Active Substance: ONDANSETRON HYDROCHLORIDE
     Indication: Prophylaxis of nausea and vomiting
     Dates: start: 20210704, end: 20210705
  16. METOCLOPRAMIDE [Concomitant]
     Active Substance: METOCLOPRAMIDE
     Indication: Prophylaxis of nausea and vomiting
     Dates: start: 20210707, end: 20210707
  17. METOCLOPRAMIDE [Concomitant]
     Active Substance: METOCLOPRAMIDE
     Indication: Prophylaxis of nausea and vomiting
  18. HYDROCORTISONE [Concomitant]
     Active Substance: HYDROCORTISONE
     Indication: Prophylaxis
     Dates: start: 20210725, end: 20210725

REACTIONS (9)
  - Embolic stroke [Fatal]
  - Escherichia sepsis [Fatal]
  - Neutropenia [Fatal]
  - Thrombocytopenia [Recovered/Resolved]
  - Hypophosphataemia [Recovered/Resolved]
  - Constipation [Recovered/Resolved]
  - Fatigue [Recovered/Resolved]
  - Anaemia [Recovered/Resolved]
  - Oedema peripheral [Recovered/Resolved]

NARRATIVE: CASE EVENT DATE: 20210704
